FAERS Safety Report 10881766 (Version 1)
Quarter: 2015Q1

REPORT INFORMATION
  Report Type: Report from Study
  Country: SI (occurrence: SI)
  Receive Date: 20150303
  Receipt Date: 20150303
  Transmission Date: 20150721
  Serious: Yes (Hospitalization)
  Sender: FDA-Public Use
  Company Number: SI-ROCHE-1542604

PATIENT
  Age: 79 Year
  Sex: Male
  Weight: 70 kg

DRUGS (12)
  1. TIANEPTINE [Concomitant]
     Active Substance: TIANEPTINE
     Route: 048
     Dates: start: 200109
  2. ALLOPURINOL. [Concomitant]
     Active Substance: ALLOPURINOL
     Indication: PROPHYLAXIS
     Route: 048
     Dates: start: 20150212
  3. PARACETAMOL [Concomitant]
     Active Substance: ACETAMINOPHEN
     Indication: PROPHYLAXIS
     Route: 042
     Dates: start: 20150218, end: 20150219
  4. CLEMASTINE [Concomitant]
     Active Substance: CLEMASTINE
     Indication: PROPHYLAXIS
     Route: 042
     Dates: start: 20150218, end: 20150219
  5. STEROFUNDIN ISO (CALCIUM CHLORIDE DIHYDRATE/MAGNESIUM CHLORIDE HEXAHYD [Concomitant]
     Dosage: 70ML/H
     Route: 042
     Dates: start: 20150219, end: 20150220
  6. OBINUTUZUMAB [Suspect]
     Active Substance: OBINUTUZUMAB
     Indication: CHRONIC LYMPHOCYTIC LEUKAEMIA
     Dosage: LAST DOSE PRIOR TO SAE WAS ON THE 19/FEB/2015
     Route: 042
     Dates: start: 20150219
  7. CHLORAMBUCIL [Suspect]
     Active Substance: CHLORAMBUCIL
     Indication: CHRONIC LYMPHOCYTIC LEUKAEMIA
     Dosage: LAST DOSE PRIOR TO SAE WAS ON THE 18/FEB/2015
     Route: 048
     Dates: start: 20150218
  8. STEROFUNDIN ISO (CALCIUM CHLORIDE DIHYDRATE/MAGNESIUM CHLORIDE HEXAHYD [Concomitant]
     Indication: PROPHYLAXIS
     Dosage: 70ML/H
     Route: 042
     Dates: start: 20150217, end: 20150218
  9. STEROFUNDIN ISO (CALCIUM CHLORIDE DIHYDRATE/MAGNESIUM CHLORIDE HEXAHYD [Concomitant]
     Dosage: 120ML/H
     Route: 042
     Dates: start: 20150218, end: 20150219
  10. METHYLPREDNISOLONE. [Concomitant]
     Active Substance: METHYLPREDNISOLONE
     Indication: PROPHYLAXIS
     Route: 048
     Dates: start: 20150217, end: 20150217
  11. METHYLPREDNISOLONE. [Concomitant]
     Active Substance: METHYLPREDNISOLONE
     Route: 048
     Dates: start: 20150218, end: 20150219
  12. PANTOPRAZOLE [Concomitant]
     Active Substance: PANTOPRAZOLE SODIUM
     Indication: PROPHYLAXIS
     Route: 048
     Dates: start: 20150218

REACTIONS (1)
  - Disseminated intravascular coagulation [Recovered/Resolved]

NARRATIVE: CASE EVENT DATE: 20150219
